FAERS Safety Report 5688573-2 (Version None)
Quarter: 2008Q1

REPORT INFORMATION
  Report Type: 
  Country: None (occurrence: None)
  Receive Date: 20080331
  Receipt Date: 20080327
  Transmission Date: 20080703
  Serious: Yes (Hospitalization)
  Sender: FDA-Public Use
  Company Number: US-BRISTOL-MYERS SQUIBB COMPANY-14129035

PATIENT
  Sex: Female

DRUGS (6)
  1. CISPLATIN [Suspect]
     Indication: GASTRIC CANCER
     Dosage: LAST ADMINSTERED ON 19FEB08.
     Dates: start: 20080219, end: 20080219
  2. DOCETAXEL [Suspect]
     Indication: GASTRIC CANCER
     Dates: start: 20080219, end: 20080219
  3. FOLINIC ACID [Suspect]
     Indication: GASTRIC CANCER
  4. IRINOTECAN HCL [Suspect]
     Indication: GASTRIC CANCER
  5. FLUOROURACIL [Suspect]
     Indication: GASTRIC CANCER
  6. OMEPRAZOLE [Concomitant]
     Dosage: LAST ADMINSTERED ON 22FEB08.

REACTIONS (3)
  - DIARRHOEA [None]
  - NEUTROPENIA [None]
  - SYNCOPE [None]
